FAERS Safety Report 10077660 (Version 2)
Quarter: 2014Q2

REPORT INFORMATION
  Report Type: Spontaneous
  Country: US (occurrence: US)
  Receive Date: 20140414
  Receipt Date: 20140414
  Transmission Date: 20141212
  Serious: No
  Sender: FDA-Public Use
  Company Number: US-BANPHARM-20142172

PATIENT
  Age: 64 Year
  Sex: Female
  Weight: 78.02 kg

DRUGS (2)
  1. ALEVE LIQUID GELS 220 MG [Suspect]
     Indication: TOOTHACHE
     Dosage: Q6H,
     Route: 048
     Dates: start: 201401, end: 201402
  2. ALEVE LIQUID GELS 220 MG [Suspect]
     Indication: TOOTHACHE
     Dosage: Q6H,
     Route: 048
     Dates: start: 201401, end: 201402

REACTIONS (6)
  - Rash [Not Recovered/Not Resolved]
  - Erythema [Not Recovered/Not Resolved]
  - Pruritus [Not Recovered/Not Resolved]
  - Drug effect incomplete [Unknown]
  - Incorrect dose administered [Unknown]
  - Incorrect drug administration duration [Unknown]
